FAERS Safety Report 23924682 (Version 1)
Quarter: 2024Q2

REPORT INFORMATION
  Report Type: Other
  Country: US (occurrence: US)
  Receive Date: 20240531
  Receipt Date: 20240531
  Transmission Date: 20240716
  Serious: Yes (Other)
  Sender: FDA-Public Use
  Company Number: US-Fagron Sterile Services-2157610

PATIENT
  Age: 20 Year
  Sex: Female
  Weight: 96.6 kg

DRUGS (1)
  1. BUPIVACAINE HYDROCHLORIDE\FENTANYL CITRATE [Suspect]
     Active Substance: BUPIVACAINE HYDROCHLORIDE\FENTANYL CITRATE

REACTIONS (1)
  - Drug ineffective [Recovered/Resolved]
